FAERS Safety Report 23210697 (Version 1)
Quarter: 2023Q4

REPORT INFORMATION
  Report Type: Spontaneous
  Country: GB (occurrence: GB)
  Receive Date: 20231121
  Receipt Date: 20231121
  Transmission Date: 20240109
  Serious: Yes (Hospitalization)
  Sender: FDA-Public Use
  Company Number: GB-MAYNE PHARMA-2023MYN000644

PATIENT

DRUGS (1)
  1. TAMOXIFEN CITRATE [Suspect]
     Active Substance: TAMOXIFEN CITRATE
     Indication: Breast cancer
     Route: 065

REACTIONS (4)
  - Medication error [Unknown]
  - Vaginal haemorrhage [Recovered/Resolved with Sequelae]
  - Polyp [Unknown]
  - Food intolerance [Unknown]
